FAERS Safety Report 10153881 (Version 1)
Quarter: 2014Q2

REPORT INFORMATION
  Report Type: Spontaneous
  Country: US (occurrence: US)
  Receive Date: 20140506
  Receipt Date: 20140506
  Transmission Date: 20141212
  Serious: Yes (Hospitalization, Other)
  Sender: FDA-Public Use
  Company Number: US-JNJFOC-20140418450

PATIENT
  Age: 77 Year
  Sex: Male
  Weight: 61.24 kg

DRUGS (10)
  1. TYLENOL COLD AND FLU SEVERE CAPLETS [Suspect]
     Indication: ASTHMA
     Route: 048
  2. TYLENOL COLD AND FLU SEVERE CAPLETS [Suspect]
     Indication: ASTHMA
     Route: 048
     Dates: start: 20140305
  3. TYLENOL COLD AND FLU SEVERE CAPLETS [Suspect]
     Indication: HYPERSENSITIVITY
     Route: 048
  4. TYLENOL COLD AND FLU SEVERE CAPLETS [Suspect]
     Indication: HYPERSENSITIVITY
     Route: 048
     Dates: start: 20140305
  5. TYLENOL COLD AND FLU SEVERE CAPLETS [Suspect]
     Indication: NASOPHARYNGITIS
     Route: 048
  6. TYLENOL COLD AND FLU SEVERE CAPLETS [Suspect]
     Indication: NASOPHARYNGITIS
     Route: 048
     Dates: start: 20140305
  7. ALBUTEROL [Concomitant]
     Indication: ASTHMA
     Route: 065
  8. PREDNISONE [Concomitant]
     Indication: ASTHMA
     Route: 065
  9. PROVENTIL [Concomitant]
     Indication: ASTHMA
     Route: 065
  10. SODIUM CHLORIDE [Concomitant]
     Indication: ASTHMA
     Route: 065

REACTIONS (2)
  - Asthma [Not Recovered/Not Resolved]
  - Drug administration error [Unknown]
